FAERS Safety Report 24769007 (Version 2)
Quarter: 2025Q1

REPORT INFORMATION
  Report Type: Spontaneous
  Country: US (occurrence: US)
  Receive Date: 20241224
  Receipt Date: 20250303
  Transmission Date: 20250408
  Serious: Yes (Hospitalization, Other)
  Sender: MERCK SHARP & DOHME LLC
  Company Number: US-009507513-2412USA007248

PATIENT
  Sex: Female
  Weight: 76.657 kg

DRUGS (3)
  1. KEYTRUDA [Suspect]
     Active Substance: PEMBROLIZUMAB
     Indication: Triple negative breast cancer
     Dosage: EVERY 3 WEEKS (Q3W)
     Route: 042
     Dates: start: 20231112, end: 20240515
  2. PREDNISONE [Concomitant]
     Active Substance: PREDNISONE
     Dates: end: 202412
  3. HUMAN IMMUNOGLOBULIN G [Concomitant]
     Active Substance: HUMAN IMMUNOGLOBULIN G

REACTIONS (3)
  - Myocarditis [Recovering/Resolving]
  - Cardiac failure congestive [Recovering/Resolving]
  - Hypotension [Recovering/Resolving]
